FAERS Safety Report 7939106-9 (Version None)
Quarter: 2011Q4

REPORT INFORMATION
  Report Type: 
  Country: None (occurrence: None)
  Receive Date: 20111124
  Receipt Date: 20111110
  Transmission Date: 20120403
  Serious: Yes (Other)
  Sender: FDA-Public Use
  Company Number: ES-ROCHE-1011881

PATIENT
  Age: 59 Year
  Sex: Female

DRUGS (3)
  1. HERCEPTIN [Suspect]
     Indication: PRODUCT USED FOR UNKNOWN INDICATION
  2. HERCEPTIN [Suspect]
  3. PACLITAXEL [Concomitant]
     Indication: BREAST CANCER METASTATIC

REACTIONS (2)
  - THROMBOCYTOPENIA [None]
  - DRUG INTOLERANCE [None]
